FAERS Safety Report 5827900-X (Version None)
Quarter: 2008Q3

REPORT INFORMATION
  Report Type: 
  Country: None (occurrence: None)
  Receive Date: 20080730
  Receipt Date: 20080721
  Transmission Date: 20090109
  Serious: Yes (Other)
  Sender: FDA-Public Use
  Company Number: US-PFIZER INC-2008058202

PATIENT
  Sex: Female
  Weight: 109.09 kg

DRUGS (4)
  1. LYRICA [Suspect]
     Indication: FIBROMYALGIA
  2. ANTIHYPERTENSIVES [Concomitant]
  3. DRUG USED IN DIABETES [Concomitant]
  4. ALL OTHER THERAPEUTIC PRODUCTS [Concomitant]

REACTIONS (8)
  - ACTIVITIES OF DAILY LIVING IMPAIRED [None]
  - BALANCE DISORDER [None]
  - DISORIENTATION [None]
  - DIZZINESS [None]
  - FEELING DRUNK [None]
  - IMPAIRED DRIVING ABILITY [None]
  - MALAISE [None]
  - SOMNOLENCE [None]
